FAERS Safety Report 5096634-4 (Version None)
Quarter: 2006Q3

REPORT INFORMATION
  Report Type: 
  Country: None (occurrence: None)
  Receive Date: 20060831
  Receipt Date: 20060609
  Transmission Date: 20061208
  Serious: Yes (Hospitalization)
  Sender: FDA-Public Use
  Company Number: 2006VX000681

PATIENT
  Age: 66 Year
  Sex: Female

DRUGS (7)
  1. FLURAZEPAM HCL [Suspect]
     Dosage: PO
     Route: 048
  2. LORAZEPAM [Suspect]
  3. TAXILAN (PERAZINE) [Suspect]
  4. ANTIDEPRESSANTS (ANTIDEPRESSANTS) [Suspect]
  5. ALCOHOL (ETHANOL) [Suspect]
     Dosage: 500 ML
  6. TAVOR [Concomitant]
  7. ANTIDEPRESSANTS [Concomitant]

REACTIONS (5)
  - COMA [None]
  - CYANOSIS [None]
  - HYPOTENSION [None]
  - MULTIPLE DRUG OVERDOSE INTENTIONAL [None]
  - SUICIDE ATTEMPT [None]
